FAERS Safety Report 15456980 (Version 1)
Quarter: 2018Q3

REPORT INFORMATION
  Report Type: Spontaneous
  Country: US (occurrence: US)
  Receive Date: 20180928
  Receipt Date: 20180928
  Transmission Date: 20181010
  Serious: Yes (Other)
  Sender: FDA-Public Use
  Company Number: None

PATIENT
  Age: 68 Year
  Sex: Male
  Weight: 107.55 kg

DRUGS (22)
  1. ALFUZOSIN [Concomitant]
     Active Substance: ALFUZOSIN
  2. SILDENAFIL. [Concomitant]
     Active Substance: SILDENAFIL
  3. ACE INHIBITOR [Concomitant]
     Active Substance: UNSPECIFIED INGREDIENT
  4. ZOLPIDEM [Concomitant]
     Active Substance: ZOLPIDEM\ZOLPIDEM TARTRATE
  5. ALBUTEROL. [Concomitant]
     Active Substance: ALBUTEROL
  6. MODAFINIL. [Suspect]
     Active Substance: MODAFINIL
  7. LEXAPRO [Concomitant]
     Active Substance: ESCITALOPRAM OXALATE
  8. B?12 COMPLEX [Concomitant]
  9. ZINC. [Concomitant]
     Active Substance: ZINC
  10. MAGNESIUM [Concomitant]
     Active Substance: MAGNESIUM
  11. COQ10 [Concomitant]
     Active Substance: UBIDECARENONE
  12. ASPIRIN. [Concomitant]
     Active Substance: ASPIRIN
  13. TURMERIC [Concomitant]
     Active Substance: HERBALS\TURMERIC
  14. BETA?BLOCKER [Concomitant]
     Active Substance: UNSPECIFIED INGREDIENT
  15. ESCITALOPRAM [Concomitant]
     Active Substance: ESCITALOPRAM OXALATE
  16. TRULICITY [Concomitant]
     Active Substance: DULAGLUTIDE
  17. MULTIPLE [Concomitant]
  18. HYDROCHLOROTHIAZIDE. [Concomitant]
     Active Substance: HYDROCHLOROTHIAZIDE
  19. GLARGINE [Concomitant]
  20. FISH OIL [Concomitant]
     Active Substance: FISH OIL
  21. JARDIANCE [Suspect]
     Active Substance: EMPAGLIFLOZIN
     Indication: TYPE 2 DIABETES MELLITUS
     Dosage: ?          QUANTITY:1 TABLET(S);?
     Route: 048
  22. ALPHA?LAPOIC ACID [Concomitant]

REACTIONS (1)
  - Diarrhoea [None]

NARRATIVE: CASE EVENT DATE: 20180927
